FAERS Safety Report 12964811 (Version 1)
Quarter: 2016Q4

REPORT INFORMATION
  Report Type: Spontaneous
  Country: GB (occurrence: GB)
  Receive Date: 20161122
  Receipt Date: 20161122
  Transmission Date: 20170207
  Serious: Yes (Hospitalization)
  Sender: FDA-Public Use
  Company Number: GB-NORTHSTAR HEALTHCARE HOLDINGS-GB-2016NSR001879

PATIENT
  Sex: Male
  Weight: 3.49 kg

DRUGS (2)
  1. TRAMADOL HYDROCHLORIDE. [Suspect]
     Active Substance: TRAMADOL HYDROCHLORIDE
     Indication: FOETAL EXPOSURE DURING PREGNANCY
     Dosage: UNK
     Route: 064
  2. CODEINE [Suspect]
     Active Substance: CODEINE
     Indication: FOETAL EXPOSURE DURING PREGNANCY
     Dosage: 60 MG, TID
     Route: 064

REACTIONS (9)
  - Respiratory distress [Unknown]
  - Vomiting [Unknown]
  - Hypoglycaemia [Unknown]
  - Drug withdrawal syndrome neonatal [Unknown]
  - Lower respiratory tract infection [Unknown]
  - Body temperature abnormal [Unknown]
  - Poor feeding infant [Recovering/Resolving]
  - Weight decreased [Recovering/Resolving]
  - Chest X-ray abnormal [Unknown]
